FAERS Safety Report 23096463 (Version 1)
Quarter: 2023Q4

REPORT INFORMATION
  Report Type: Spontaneous
  Country: US (occurrence: None)
  Receive Date: 20231022
  Receipt Date: 20231022
  Transmission Date: 20240110
  Serious: Yes (Life-Threatening, Hospitalization, Disabling)
  Sender: FDA-Public Use
  Company Number: None

PATIENT
  Age: 56 Year
  Sex: Female
  Weight: 103.5 kg

DRUGS (5)
  1. ELIQUIS [Suspect]
     Active Substance: APIXABAN
     Indication: Postoperative care
     Dates: start: 20210528, end: 20210604
  2. ELIQUIS [Suspect]
     Active Substance: APIXABAN
     Indication: Anticoagulant therapy
  3. HYDROCORTISONE [Concomitant]
     Active Substance: HYDROCORTISONE
  4. DICYCLOMINE [Concomitant]
     Active Substance: DICYCLOMINE HYDROCHLORIDE
  5. ZOLPIDEM [Concomitant]
     Active Substance: ZOLPIDEM TARTRATE

REACTIONS (5)
  - Abdominal pain upper [None]
  - Adrenal haemorrhage [None]
  - Adrenal insufficiency [None]
  - Joint range of motion decreased [None]
  - Complication associated with device [None]

NARRATIVE: CASE EVENT DATE: 20210528
